FAERS Safety Report 11254367 (Version 2)
Quarter: 2015Q3

REPORT INFORMATION
  Report Type: Spontaneous
  Country: US (occurrence: US)
  Receive Date: 20150709
  Receipt Date: 20150709
  Transmission Date: 20151125
  Serious: No
  Sender: FDA-Public Use
  Company Number: US-TAKEDA-2012-02249

PATIENT
  Age: 60 Year
  Sex: Male

DRUGS (2)
  1. VELCADE [Suspect]
     Active Substance: BORTEZOMIB
     Dosage: 2.5 MG, CYCLIC
     Route: 042
     Dates: start: 20120109
  2. VELCADE [Suspect]
     Active Substance: BORTEZOMIB
     Indication: PLASMA CELL MYELOMA
     Dosage: 2.5 MG, CYCLIC
     Route: 058
     Dates: start: 20120313, end: 20120313

REACTIONS (1)
  - Injection site streaking [Recovered/Resolved]

NARRATIVE: CASE EVENT DATE: 20120314
